FAERS Safety Report 10259992 (Version 1)
Quarter: 2014Q2

REPORT INFORMATION
  Report Type: Other
  Country: CH (occurrence: CH)
  Receive Date: 20140625
  Receipt Date: 20140625
  Transmission Date: 20141212
  Serious: Yes (Hospitalization)
  Sender: FDA-Public Use
  Company Number: CH-CUBIST PHARMACEUTICAL, INC.-2014CBST000886

PATIENT
  Sex: 0

DRUGS (15)
  1. CUBICIN [Suspect]
     Indication: SEPTIC ARTHRITIS STAPHYLOCOCCAL
     Dosage: 1050 MG, UNK
     Route: 041
     Dates: start: 20131017, end: 20131119
  2. CUBICIN [Suspect]
     Indication: OFF LABEL USE
  3. RIMACTAN                           /00146901/ [Suspect]
     Indication: SEPTIC ARTHRITIS STAPHYLOCOCCAL
     Dosage: 1200 MG, IV INFUSION
     Dates: start: 20131023, end: 20131120
  4. TAVANIC [Suspect]
     Indication: SEPTIC ARTHRITIS STAPHYLOCOCCAL
     Dosage: 1000 MG, UNK
     Route: 048
     Dates: start: 20131018, end: 20131120
  5. KEFZOL [Suspect]
     Indication: SEPTIC ARTHRITIS STAPHYLOCOCCAL
     Dosage: 8 G, UNK
     Route: 041
     Dates: start: 20131111, end: 20131117
  6. TIENAM [Suspect]
     Indication: SEPTIC ARTHRITIS STAPHYLOCOCCAL
     Dosage: UNK, UNK
     Route: 041
     Dates: start: 20131028
  7. TIENAM [Suspect]
     Route: 041
     Dates: start: 20131220, end: 20140123
  8. FLOXAPEN /00239102/ [Suspect]
     Indication: SEPTIC ARTHRITIS STAPHYLOCOCCAL
     Dosage: UNK, UNK
     Route: 065
     Dates: start: 20131017, end: 20131028
  9. CORDARONE [Concomitant]
     Indication: PRODUCT USED FOR UNKNOWN INDICATION
     Dosage: UNK UNK, UNK
     Route: 065
     Dates: start: 20131103, end: 20131115
  10. HEPARIN [Concomitant]
     Indication: PRODUCT USED FOR UNKNOWN INDICATION
     Dosage: UNK UNK, UNK
     Route: 065
     Dates: start: 20131113, end: 20140123
  11. PAPAVER SOMNIFERUM TINCTURE [Concomitant]
     Indication: PRODUCT USED FOR UNKNOWN INDICATION
     Dosage: UNK UNK, UNK
     Route: 065
     Dates: start: 201310, end: 20131117
  12. IMODIUM [Concomitant]
     Indication: PRODUCT USED FOR UNKNOWN INDICATION
     Dosage: UNK UNK, UNK
     Route: 065
     Dates: start: 20131117
  13. LASIX                              /00032601/ [Concomitant]
     Indication: PRODUCT USED FOR UNKNOWN INDICATION
     Dosage: UNK UNK, UNK
     Route: 065
     Dates: start: 201310, end: 20131119
  14. BELOC                              /00376902/ [Concomitant]
     Indication: PRODUCT USED FOR UNKNOWN INDICATION
     Dosage: UNK, UNK
     Route: 065
     Dates: start: 20131116, end: 20131117
  15. ACTRAPID [Concomitant]
     Indication: PRODUCT USED FOR UNKNOWN INDICATION
     Dosage: UNK UNK, UNK
     Route: 065

REACTIONS (8)
  - Tubulointerstitial nephritis [Unknown]
  - Condition aggravated [Recovered/Resolved]
  - Drug reaction with eosinophilia and systemic symptoms [Recovered/Resolved]
  - Renal failure acute [Recovered/Resolved]
  - Eosinophil count increased [Recovered/Resolved]
  - Rash macular [Unknown]
  - Erythema [Recovered/Resolved]
  - Pyrexia [Recovered/Resolved]
